FAERS Safety Report 7603787-X (Version None)
Quarter: 2011Q3

REPORT INFORMATION
  Report Type: 
  Country: None (occurrence: None)
  Receive Date: 20110712
  Receipt Date: 20110706
  Transmission Date: 20111222
  Serious: Yes (Hospitalization)
  Sender: FDA-Public Use
  Company Number: US-GLAXOSMITHKLINE-A0935147A

PATIENT
  Age: 55 Year
  Sex: Female

DRUGS (7)
  1. CRESTOR [Concomitant]
  2. METFORMIN HCL [Concomitant]
  3. VENTOLIN HFA [Suspect]
     Indication: ASTHMA
     Dosage: 1PUFF TWICE PER DAY
     Route: 055
  4. JANUVIA [Concomitant]
  5. ADVAIR DISKUS 100/50 [Concomitant]
  6. ACTOS [Concomitant]
  7. UNSPECIFIED MEDICATION [Concomitant]

REACTIONS (2)
  - PRODUCT QUALITY ISSUE [None]
  - ASTHMA [None]
